FAERS Safety Report 16096236 (Version 1)
Quarter: 2019Q1

REPORT INFORMATION
  Report Type: Spontaneous
  Country: US (occurrence: US)
  Receive Date: 20190320
  Receipt Date: 20190320
  Transmission Date: 20190418
  Serious: Yes (Life-Threatening, Hospitalization)
  Sender: FDA-Public Use
  Company Number: US-MYLANLABS-2019M1024732

PATIENT
  Age: 75 Year
  Sex: Female

DRUGS (2)
  1. CLOPIDOGREL [Suspect]
     Active Substance: CLOPIDOGREL BISULFATE
     Indication: ANTIPLATELET THERAPY
     Route: 065
  2. ASPIRIN                            /00002701/ [Suspect]
     Active Substance: ASPIRIN
     Indication: ANTIPLATELET THERAPY
     Route: 065

REACTIONS (17)
  - Coagulopathy [Unknown]
  - Ecchymosis [Unknown]
  - Tongue oedema [Unknown]
  - Bradycardia [Recovering/Resolving]
  - Lip haematoma [Unknown]
  - Haemoglobin decreased [Unknown]
  - Hypotension [Unknown]
  - Tongue haemorrhage [Unknown]
  - Obstructive airways disorder [Unknown]
  - Dysphonia [Unknown]
  - Mouth haemorrhage [Unknown]
  - Glossoptosis [Unknown]
  - Dysarthria [Unknown]
  - Tongue haematoma [Recovering/Resolving]
  - Vascular pseudoaneurysm [Unknown]
  - Muscle haemorrhage [Recovering/Resolving]
  - Dyspnoea [Unknown]
